FAERS Safety Report 18437121 (Version 2)
Quarter: 2021Q3

REPORT INFORMATION
  Report Type: Spontaneous
  Country: US (occurrence: US)
  Receive Date: 20201028
  Receipt Date: 20210716
  Transmission Date: 20211014
  Serious: Yes (Other)
  Sender: FDA-Public Use
  Company Number: US-PFIZER INC-2020088951

PATIENT
  Age: 69 Year
  Sex: Female
  Weight: 92.53 kg

DRUGS (3)
  1. IBRANCE [Suspect]
     Active Substance: PALBOCICLIB
     Indication: BREAST CANCER METASTATIC
     Dosage: 125 MG
     Dates: start: 20210201
  2. IBRANCE [Suspect]
     Active Substance: PALBOCICLIB
     Dosage: 125 MG, 1X/DAY
     Route: 048
     Dates: start: 20200224
  3. IBRANCE [Suspect]
     Active Substance: PALBOCICLIB
     Dosage: 100 MG
     Dates: start: 202103

REACTIONS (6)
  - Product complaint [Unknown]
  - Blood count abnormal [Unknown]
  - Diarrhoea [Unknown]
  - Neutropenia [Unknown]
  - Poor quality product administered [Unknown]
  - Foot fracture [Unknown]

NARRATIVE: CASE EVENT DATE: 20200224
